FAERS Safety Report 20652502 (Version 1)
Quarter: 2022Q1

REPORT INFORMATION
  Report Type: Spontaneous
  Country: US (occurrence: US)
  Receive Date: 20220330
  Receipt Date: 20220330
  Transmission Date: 20220423
  Serious: Yes (Life-Threatening, Hospitalization, Other)
  Sender: FDA-Public Use
  Company Number: US-PFIZER INC-202101568786

PATIENT
  Age: 69 Year
  Sex: Male

DRUGS (2)
  1. LINEZOLID [Suspect]
     Active Substance: LINEZOLID
     Indication: Staphylococcal bacteraemia
     Dosage: UNK
     Route: 048
     Dates: start: 201907, end: 201908
  2. LINEZOLID [Suspect]
     Active Substance: LINEZOLID
     Indication: Osteomyelitis
     Dosage: 30-DAY SUPPLY WITH 3 REFILLS
     Route: 048
     Dates: end: 202001

REACTIONS (10)
  - Toxicity to various agents [Recovered/Resolved]
  - Incorrect product administration duration [Unknown]
  - Hypolipidaemia [Recovered/Resolved]
  - Fall [Recovered/Resolved]
  - Bicytopenia [Recovered/Resolved]
  - Pleural effusion [Recovered/Resolved]
  - Product prescribing error [Unknown]
  - Hypogammaglobulinaemia [Recovered/Resolved]
  - Colitis [Recovered/Resolved]
  - Alopecia [Recovered/Resolved]

NARRATIVE: CASE EVENT DATE: 20190101
